FAERS Safety Report 15568073 (Version 10)
Quarter: 2019Q1

REPORT INFORMATION
  Report Type: Spontaneous
  Country: US (occurrence: US)
  Receive Date: 20181030
  Receipt Date: 20190314
  Transmission Date: 20190417
  Serious: Yes (Hospitalization)
  Sender: FDA-Public Use
  Company Number: US-BIOGEN-2018BI00650361

PATIENT
  Age: 16 Day
  Sex: Female

DRUGS (1)
  1. SPINRAZA [Suspect]
     Active Substance: NUSINERSEN
     Indication: SPINAL MUSCULAR ATROPHY
     Route: 050
     Dates: start: 20181011

REACTIONS (13)
  - Pyrexia [Recovered/Resolved]
  - Respiratory disorder [Unknown]
  - Dyspnoea [Unknown]
  - Cardio-respiratory arrest [Recovered/Resolved]
  - Heart rate decreased [Not Recovered/Not Resolved]
  - Vomiting [Recovered/Resolved]
  - Bronchial secretion retention [Recovered/Resolved]
  - Extremity necrosis [Recovered/Resolved]
  - Respiratory failure [Recovered/Resolved]
  - Finger amputation [Recovered/Resolved]
  - Choking [Recovered/Resolved]
  - Hypertension [Unknown]
  - Heart rate increased [Unknown]

NARRATIVE: CASE EVENT DATE: 20181012
